FAERS Safety Report 22219963 (Version 1)
Quarter: 2023Q2

REPORT INFORMATION
  Report Type: Spontaneous
  Country: US (occurrence: None)
  Receive Date: 20230414
  Receipt Date: 20230414
  Transmission Date: 20230722
  Serious: No
  Sender: FDA-Public Use
  Company Number: None

PATIENT
  Age: 10 Year
  Weight: 29.9 kg

DRUGS (1)
  1. AMJEVITA [Suspect]
     Active Substance: ADALIMUMAB-ATTO
     Indication: Juvenile idiopathic arthritis
     Dosage: FREQUENCY : WEEKLY;?
     Route: 058

REACTIONS (1)
  - Injection site pain [None]

NARRATIVE: CASE EVENT DATE: 20230414
